FAERS Safety Report 5591812-X (Version None)
Quarter: 2008Q1

REPORT INFORMATION
  Report Type: 
  Country: None (occurrence: None)
  Receive Date: 20080115
  Receipt Date: 20080103
  Transmission Date: 20080703
  Serious: Yes (Other)
  Sender: FDA-Public Use
  Company Number: B0361341A

PATIENT
  Age: 23 Year
  Sex: Female

DRUGS (2)
  1. PAROXETINE HYDROCHLORIDE [Suspect]
     Route: 065
     Dates: start: 19960620
  2. DIAZEPAM [Concomitant]
     Dates: start: 19990108

REACTIONS (15)
  - ABDOMINAL DISTENSION [None]
  - AGITATION [None]
  - ANXIETY [None]
  - CONSTIPATION [None]
  - DIARRHOEA [None]
  - HALLUCINATION [None]
  - INITIAL INSOMNIA [None]
  - INSOMNIA [None]
  - LOSS OF LIBIDO [None]
  - MALAISE [None]
  - MOOD SWINGS [None]
  - NAUSEA [None]
  - NEGATIVE THOUGHTS [None]
  - PROCTALGIA FUGAX [None]
  - WITHDRAWAL SYNDROME [None]
